FAERS Safety Report 14228108 (Version 1)
Quarter: 2017Q4

REPORT INFORMATION
  Report Type: Spontaneous
  Country: US (occurrence: None)
  Receive Date: 20171127
  Receipt Date: 20171127
  Transmission Date: 20180321
  Serious: Yes (Other)
  Sender: FDA-Public Use
  Company Number: None

PATIENT
  Age: 50 Year
  Sex: Male
  Weight: 102.06 kg

DRUGS (6)
  1. SAW PALMETTO [Concomitant]
     Active Substance: HERBALS\SAW PALMETTO
  2. CVS ALLERGY PILLS [Concomitant]
  3. ALBUTEROL. [Concomitant]
     Active Substance: ALBUTEROL
  4. LORATADINE. [Concomitant]
     Active Substance: LORATADINE
  5. STIOLTO RESPIMAT [Concomitant]
     Active Substance: OLODATEROL HYDROCHLORIDE\TIOTROPIUM BROMIDE MONOHYDRATE
  6. METHYLPREDNISONE TABLETS USP [Suspect]
     Active Substance: METHYLPREDNISOLONE
     Indication: LUNG INFECTION
     Dosage: 4 MG TAB 2 AM 1 TAB 2TABS TABS LUNCH DINNER BY MOUTH
     Route: 048
     Dates: start: 2015, end: 201701

REACTIONS (4)
  - Skin atrophy [None]
  - Dry skin [None]
  - Skin haemorrhage [None]
  - Loss of personal independence in daily activities [None]

NARRATIVE: CASE EVENT DATE: 2016
